FAERS Safety Report 26130163 (Version 2)
Quarter: 2025Q4

REPORT INFORMATION
  Report Type: Spontaneous
  Country: US (occurrence: None)
  Receive Date: 20251208
  Receipt Date: 20251229
  Transmission Date: 20260118
  Serious: No
  Sender: APOTEX
  Company Number: US-APOTEX-2025AP032997

PATIENT

DRUGS (1)
  1. IMATINIB [Suspect]
     Active Substance: IMATINIB
     Indication: Product used for unknown indication
     Dosage: 400 MILLIGRAM, QD
     Route: 065
     Dates: start: 20251030

REACTIONS (9)
  - Food allergy [Recovering/Resolving]
  - General symptom [Unknown]
  - Muscle tightness [Unknown]
  - Respiratory rate increased [Unknown]
  - Product dose omission issue [Unknown]
  - Heart rate increased [Unknown]
  - Blood pressure increased [Unknown]
  - Tremor [Recovered/Resolved]
  - Chills [Not Recovered/Not Resolved]

NARRATIVE: CASE EVENT DATE: 20251030
